FAERS Safety Report 6112848-6 (Version None)
Quarter: 2009Q1

REPORT INFORMATION
  Report Type: 
  Country: None (occurrence: None)
  Receive Date: 20090312
  Receipt Date: 20090303
  Transmission Date: 20090719
  Serious: Yes (Hospitalization)
  Sender: FDA-Public Use
  Company Number: IT-ASTRAZENECA-2009SE00992

PATIENT
  Age: 25722 Day
  Sex: Female

DRUGS (10)
  1. MERREM [Suspect]
     Indication: STAPHYLOCOCCAL SEPSIS
     Route: 042
     Dates: start: 20081225, end: 20090107
  2. METRONIDAZOLE [Suspect]
     Indication: STAPHYLOCOCCAL SEPSIS
     Route: 042
     Dates: start: 20081224, end: 20090107
  3. LEVOXACIN [Suspect]
     Indication: PYREXIA
     Route: 042
     Dates: start: 20081212, end: 20081224
  4. LIKACIN [Suspect]
     Indication: PYREXIA
     Route: 042
     Dates: start: 20081216, end: 20081230
  5. AMLODIPINE [Concomitant]
  6. FUROSEMIDE [Concomitant]
  7. OMEPRAZOLE [Concomitant]
  8. ENOXAPARIN [Concomitant]
  9. TARGOCID [Concomitant]
     Indication: STAPHYLOCOCCAL INFECTION
     Route: 042
     Dates: start: 20081217
  10. TARGOCID [Concomitant]
     Route: 042
     Dates: end: 20090116

REACTIONS (2)
  - GENERALISED OEDEMA [None]
  - NEPHROTIC SYNDROME [None]
